FAERS Safety Report 23558048 (Version 3)
Quarter: 2024Q1

REPORT INFORMATION
  Report Type: Report from Study
  Country: GB (occurrence: GB)
  Receive Date: 20240223
  Receipt Date: 20240322
  Transmission Date: 20240410
  Serious: Yes (Other)
  Sender: FDA-Public Use
  Company Number: GB-002147023-NVSC2023GB089804

PATIENT
  Sex: Male

DRUGS (3)
  1. HYRIMOZ [Suspect]
     Active Substance: ADALIMUMAB-ADAZ
     Dosage: 1 MG, Q2W
     Route: 058
     Dates: start: 20220327
  2. HYRIMOZ [Suspect]
     Active Substance: ADALIMUMAB-ADAZ
     Dosage: 1.00 MG,EOW
     Route: 058
     Dates: start: 20220327
  3. HYRIMOZ [Suspect]
     Active Substance: ADALIMUMAB-ADAZ
     Indication: Spinal osteoarthritis
     Dosage: 40 MG, Q2W
     Route: 058
     Dates: start: 20220327

REACTIONS (13)
  - Mental impairment [Not Recovered/Not Resolved]
  - Abdominal discomfort [Unknown]
  - Pain [Recovering/Resolving]
  - Screaming [Unknown]
  - Emotional distress [Unknown]
  - Musculoskeletal stiffness [Unknown]
  - Bedridden [Unknown]
  - Condition aggravated [Unknown]
  - Negative thoughts [Not Recovered/Not Resolved]
  - Insomnia [Not Recovered/Not Resolved]
  - Blood disorder [Unknown]
  - Product dose omission issue [Unknown]
  - Therapeutic response shortened [Unknown]
